FAERS Safety Report 5645503-7 (Version None)
Quarter: 2008Q1

REPORT INFORMATION
  Report Type: 
  Country: None (occurrence: None)
  Receive Date: 20080229
  Receipt Date: 20070606
  Transmission Date: 20080703
  Serious: Yes (Life-Threatening, Hospitalization, Disabling)
  Sender: FDA-Public Use
  Company Number: US-BRISTOL-MYERS SQUIBB COMPANY-13780457

PATIENT
  Age: 55 Year
  Sex: Male

DRUGS (13)
  1. TAXOL [Suspect]
     Indication: ADENOCARCINOMA
     Route: 042
     Dates: start: 20070315, end: 20070315
  2. CARBOPLATIN [Suspect]
     Indication: ADENOCARCINOMA
     Route: 042
     Dates: start: 20070315, end: 20070315
  3. FAMOTIDINE [Concomitant]
     Indication: CHEMOTHERAPY
     Dates: start: 20070223, end: 20070315
  4. DIPHENHYDRAMINE HCL [Concomitant]
     Indication: CHEMOTHERAPY
     Dates: start: 20070223, end: 20070315
  5. APREPITANT [Concomitant]
     Indication: CHEMOTHERAPY
     Dates: start: 20070223, end: 20070315
  6. ONDANSETRON [Concomitant]
     Indication: CHEMOTHERAPY
     Dates: start: 20070223, end: 20070315
  7. DEXAMETHASONE TAB [Concomitant]
     Indication: CHEMOTHERAPY
     Dates: start: 20070223, end: 20070315
  8. DEXAMETHASONE TAB [Concomitant]
  9. PERCOCET [Concomitant]
  10. COLACE [Concomitant]
  11. PREVACID [Concomitant]
  12. REGLAN [Concomitant]
  13. IBUPROFEN [Concomitant]

REACTIONS (1)
  - EJECTION FRACTION DECREASED [None]
